FAERS Safety Report 10531823 (Version 3)
Quarter: 2015Q1

REPORT INFORMATION
  Report Type: Spontaneous
  Country: AT (occurrence: AT)
  Receive Date: 20141021
  Receipt Date: 20150120
  Transmission Date: 20150720
  Serious: Yes (Other)
  Sender: FDA-Public Use
  Company Number: AT-ELI_LILLY_AND_COMPANY-AT201410004178

PATIENT
  Age: 38 Year
  Sex: Female
  Weight: 92 kg

DRUGS (9)
  1. ZYPREXA [Suspect]
     Active Substance: OLANZAPINE
     Dosage: 5 MG, QD
     Route: 065
     Dates: start: 20131003
  2. PRAXITEN [Concomitant]
     Active Substance: OXAZEPAM
     Dosage: 15 MG, QD
     Route: 065
     Dates: start: 20131003, end: 20131006
  3. EFECTIN ER [Concomitant]
     Active Substance: VENLAFAXINE HYDROCHLORIDE
     Dosage: 150 MG, QD
     Route: 065
     Dates: start: 20130909
  4. PRAXITEN [Concomitant]
     Active Substance: OXAZEPAM
     Dosage: 30 MG, QD
     Route: 065
     Dates: start: 20130919, end: 20131002
  5. EFECTIN ER [Concomitant]
     Active Substance: VENLAFAXINE HYDROCHLORIDE
     Indication: PRODUCT USED FOR UNKNOWN INDICATION
     Dosage: 75 MG, QD
     Route: 065
     Dates: start: 20130830, end: 20130908
  6. TRITTICO [Concomitant]
     Active Substance: TRAZODONE HYDROCHLORIDE
     Dosage: 150 MG, QD
     Route: 065
     Dates: start: 20130830
  7. ZYPREXA [Suspect]
     Active Substance: OLANZAPINE
     Indication: PRODUCT USED FOR UNKNOWN INDICATION
     Dosage: 10 MG, QD
     Route: 065
     Dates: start: 20130909, end: 20131002
  8. PRAXITEN [Concomitant]
     Active Substance: OXAZEPAM
     Dosage: 45 MG, QD
     Route: 065
     Dates: start: 20130909, end: 20130918
  9. PRAXITEN [Concomitant]
     Active Substance: OXAZEPAM
     Dosage: 7.5 MG, QD
     Route: 065
     Dates: start: 20131007

REACTIONS (1)
  - Hypogeusia [Recovering/Resolving]

NARRATIVE: CASE EVENT DATE: 20130919
